FAERS Safety Report 7110263-X (Version None)
Quarter: 2010Q4

REPORT INFORMATION
  Report Type: 
  Country: None (occurrence: None)
  Receive Date: 20101118
  Receipt Date: 20101112
  Transmission Date: 20110411
  Serious: Yes (Hospitalization)
  Sender: FDA-Public Use
  Company Number: IT-BAYER-201046917GPV

PATIENT
  Age: 84 Year
  Sex: Female

DRUGS (2)
  1. CIPROXIN [Suspect]
     Route: 048
     Dates: start: 20101030, end: 20101108
  2. TARGOCID [Suspect]
     Route: 030
     Dates: start: 20101030, end: 20101108

REACTIONS (3)
  - DERMATITIS EXFOLIATIVE [None]
  - EPIDERMOLYSIS [None]
  - PEMPHIGOID [None]
